FAERS Safety Report 5404766-3 (Version None)
Quarter: 2007Q3

REPORT INFORMATION
  Report Type: 
  Country: None (occurrence: None)
  Receive Date: 20070721
  Receipt Date: 20070719
  Transmission Date: 20080115
  Serious: Yes (Other)
  Sender: FDA-Public Use
  Company Number: 2007327098

PATIENT
  Sex: Female

DRUGS (1)
  1. BENADRYL [Suspect]
     Dosage: 12 CAPSULES ONCE, ORAL
     Route: 048

REACTIONS (3)
  - FATIGUE [None]
  - SOMNOLENCE [None]
  - TREMOR [None]
